FAERS Safety Report 10875363 (Version 3)
Quarter: 2015Q1

REPORT INFORMATION
  Report Type: Spontaneous
  Country: FR (occurrence: FR)
  Receive Date: 20150227
  Receipt Date: 20150317
  Transmission Date: 20150721
  Serious: Yes (Congenital Anomaly)
  Sender: FDA-Public Use
  Company Number: FR-B.I. PHARMACEUTICALS,INC./RIDGEFIELD-2015-BI-09235FF

PATIENT

DRUGS (4)
  1. REYATAZ [Concomitant]
     Active Substance: ATAZANAVIR SULFATE
     Indication: EXPOSURE DURING PREGNANCY
     Dosage: 300 MG
     Route: 064
     Dates: start: 201410
  2. VIRAMUNE [Suspect]
     Active Substance: NEVIRAPINE
     Indication: HIV INFECTION
     Dosage: 2 ANZ
     Route: 064
     Dates: end: 201410
  3. COMBIVIR [Suspect]
     Active Substance: LAMIVUDINE\ZIDOVUDINE
     Indication: HIV INFECTION
     Dosage: STRENGTH: 150/300MG; DAILY DOSE: 300/600MG
     Route: 064
  4. NORVIR [Concomitant]
     Active Substance: RITONAVIR
     Indication: EXPOSURE DURING PREGNANCY
     Dosage: 100 MG
     Route: 064
     Dates: start: 201410

REACTIONS (1)
  - Heart disease congenital [Not Recovered/Not Resolved]

NARRATIVE: CASE EVENT DATE: 20150106
